FAERS Safety Report 9919247 (Version 2)
Quarter: 2014Q1

REPORT INFORMATION
  Report Type: Report from Study
  Country: JP (occurrence: JP)
  Receive Date: 20140224
  Receipt Date: 20140224
  Transmission Date: 20141002
  Serious: Yes (Other)
  Sender: FDA-Public Use
  Company Number: JP-SA-THYM-1003194

PATIENT
  Age: 16 Year
  Sex: Male
  Weight: 51 kg

DRUGS (15)
  1. THYMOGLOBULINE [Suspect]
     Indication: ACUTE GRAFT VERSUS HOST DISEASE
     Dosage: 125 MG, QD
     Route: 042
     Dates: start: 20110705, end: 20110705
  2. FLUDARABINE PHOSPHATE [Suspect]
     Indication: BONE MARROW CONDITIONING REGIMEN
     Dosage: UNK
     Route: 065
     Dates: start: 20110601, end: 20110606
  3. CEFOZOPRAN HYDROCHLORIDE [Concomitant]
     Indication: ANTIBIOTIC PROPHYLAXIS
     Dosage: UNK
     Route: 065
     Dates: start: 20110607, end: 20110711
  4. TACROLIMUS [Concomitant]
     Indication: PROPHYLAXIS AGAINST GRAFT VERSUS HOST DISEASE
     Dosage: UNK
     Route: 065
     Dates: start: 20110605, end: 20110721
  5. TACROLIMUS [Concomitant]
     Indication: PROPHYLAXIS AGAINST GRAFT VERSUS HOST DISEASE
     Dosage: UNK
     Route: 065
     Dates: end: 20120124
  6. MICAFUNGIN SODIUM [Concomitant]
     Indication: ANTIFUNGAL PROPHYLAXIS
     Dosage: UNK
     Route: 065
     Dates: start: 20110607, end: 20110715
  7. METHYLPREDNISOLONE SODIUM SUCCINATE [Concomitant]
     Indication: PROPHYLAXIS AGAINST GRAFT VERSUS HOST DISEASE
     Dosage: UNK
     Route: 065
     Dates: start: 20110609, end: 20110705
  8. FAMOTIDINE [Concomitant]
     Indication: PROPHYLAXIS
     Dosage: UNK
     Route: 065
     Dates: start: 20110609, end: 20110802
  9. ALBUMIN [Concomitant]
     Indication: HYPOALBUMINAEMIA
     Dosage: UNK
     Route: 065
     Dates: start: 20110706, end: 20110710
  10. PREDNISOLONE [Concomitant]
     Indication: PROPHYLAXIS AGAINST GRAFT VERSUS HOST DISEASE
     Dosage: UNK
     Route: 065
     Dates: start: 20110706, end: 20110822
  11. FILGRASTIM [Concomitant]
     Indication: NEUTROPENIA
     Dosage: UNK
     Route: 065
     Dates: start: 20110706, end: 20110708
  12. MEROPENEM TRIHYDRATE [Concomitant]
     Indication: BACTERIAL INFECTION
     Dosage: UNK
     Route: 065
     Dates: start: 20110711, end: 20110801
  13. VORICONAZOLE [Concomitant]
     Indication: ANTIBIOTIC PROPHYLAXIS
     Dosage: UNK
     Route: 065
     Dates: start: 20110725
  14. VANCOMYCIN HYDROCHLORIDE [Concomitant]
     Indication: BACTERIAL INFECTION
     Dosage: UNK
     Route: 065
     Dates: start: 20110719, end: 20110803
  15. FENTANYL CITRATE [Concomitant]
     Indication: PAIN
     Dosage: UNK
     Route: 065
     Dates: start: 20110707, end: 20110801

REACTIONS (2)
  - Acute graft versus host disease [Recovered/Resolved]
  - Cytomegalovirus viraemia [Recovered/Resolved]
